FAERS Safety Report 14581447 (Version 1)
Quarter: 2018Q1

REPORT INFORMATION
  Report Type: Spontaneous
  Country: DK (occurrence: DK)
  Receive Date: 20180228
  Receipt Date: 20180228
  Transmission Date: 20180509
  Serious: Yes (Hospitalization)
  Sender: FDA-Public Use
  Company Number: DK-CIPLA LTD.-2018DK07628

PATIENT

DRUGS (3)
  1. INNOHEP [Concomitant]
     Active Substance: TINZAPARIN SODIUM
     Indication: THROMBOSIS
     Dosage: 0.7 ML, DAILY STYRKE: 20.000 ANTI-XA IE/ML. DOSIS: 0,7 ML
     Route: 058
     Dates: start: 20180104
  2. CALCIUM + VIT D [Concomitant]
     Active Substance: CALCIUM\VITAMIN D
     Indication: VITAMIN SUPPLEMENTATION
     Dosage: 2 DF, DAILY STYRKE: UNIKALK FORTE 400 MG CALCIUM + 19 ?G DVITAMIN.
     Dates: start: 20160726
  3. ZOLEDRONIC ACID [Suspect]
     Active Substance: ZOLEDRONIC ACID
     Indication: PLASMA CELL MYELOMA
     Dosage: STYRKE: 4 MG/100 ML. DOSIS: 100 ML
     Route: 042
     Dates: start: 20150720, end: 20170922

REACTIONS (7)
  - Bone loss [Unknown]
  - Jaw operation [Unknown]
  - Impaired healing [Unknown]
  - Dental discomfort [Unknown]
  - Osteonecrosis of jaw [Recovered/Resolved with Sequelae]
  - Tooth extraction [Unknown]
  - Osteosclerosis [Unknown]

NARRATIVE: CASE EVENT DATE: 20170101
